FAERS Safety Report 7030384-X (Version None)
Quarter: 2010Q4

REPORT INFORMATION
  Report Type: 
  Country: None (occurrence: None)
  Receive Date: 20101006
  Receipt Date: 20100928
  Transmission Date: 20110411
  Serious: Yes (Other)
  Sender: FDA-Public Use
  Company Number: US-SANOFI-AVENTIS-2010SA059242

PATIENT
  Age: 61 Year
  Sex: Female

DRUGS (3)
  1. LANTUS [Suspect]
     Indication: TYPE 2 DIABETES MELLITUS
     Dosage: 3+ YEARS DOSE:76 UNIT(S)
     Route: 058
  2. SOLOSTAR [Suspect]
     Dosage: 3+ YEARS
  3. ALL OTHER THERAPEUTIC PRODUCTS [Concomitant]

REACTIONS (2)
  - BONE DENSITY DECREASED [None]
  - SURGERY [None]
